FAERS Safety Report 8521109-7 (Version None)
Quarter: 2012Q3

REPORT INFORMATION
  Report Type: 
  Country: None (occurrence: None)
  Receive Date: 20120706
  Receipt Date: 20120626
  Transmission Date: 20120928
  Serious: Yes (Hospitalization)
  Sender: FDA-Public Use
  Company Number: DKLU1082709

PATIENT
  Age: 14 Month
  Sex: Male

DRUGS (8)
  1. KEPPRA [Concomitant]
  2. VITAMIN B6 [Concomitant]
  3. LEUCOVORIN (FOLINIC ACID) [Concomitant]
  4. PHENOBARBITAL TAB [Concomitant]
  5. SABRIL [Suspect]
     Indication: INFANTILE SPASMS
     Dosage: SEE IMAGE
     Route: 048
     Dates: start: 20110902
  6. SABRIL [Suspect]
     Indication: INFANTILE SPASMS
     Dosage: SEE IMAGE
     Route: 048
     Dates: start: 20111019
  7. SABRIL [Suspect]
     Indication: INFANTILE SPASMS
     Dosage: SEE IMAGE
     Route: 048
     Dates: start: 20120626
  8. SABRIL [Suspect]
     Indication: INFANTILE SPASMS
     Dosage: SEE IMAGE
     Route: 048
     Dates: start: 20120626

REACTIONS (1)
  - DEHYDRATION [None]
